FAERS Safety Report 9610980 (Version 2)
Quarter: 2013Q4

REPORT INFORMATION
  Report Type: Report from Study
  Country: US (occurrence: US)
  Receive Date: 20131009
  Receipt Date: 20131009
  Transmission Date: 20140711
  Serious: Yes (Other)
  Sender: FDA-Public Use
  Company Number: US-ROCHE-1273744

PATIENT
  Age: 74 Year
  Sex: Female

DRUGS (10)
  1. AVASTIN [Suspect]
     Indication: AGE-RELATED MACULAR DEGENERATION
     Route: 065
  2. AVASTIN [Suspect]
     Indication: AGE-RELATED MACULAR DEGENERATION
  3. LUCENTIS [Suspect]
     Indication: AGE-RELATED MACULAR DEGENERATION
     Route: 065
  4. LUCENTIS [Suspect]
     Indication: AGE-RELATED MACULAR DEGENERATION
  5. ASPIRIN [Concomitant]
     Route: 065
  6. LEVOTHYROXINE [Concomitant]
     Route: 065
  7. LIPITOR [Concomitant]
     Route: 065
  8. LIPITOR [Concomitant]
     Route: 065
  9. OMEPRAZOLE [Concomitant]
     Route: 065
  10. TRAZODONE [Concomitant]
     Route: 065

REACTIONS (5)
  - Breast cancer [Unknown]
  - Vitreous floaters [Unknown]
  - Photopsia [Unknown]
  - Anxiety [Unknown]
  - Gastrooesophageal reflux disease [Unknown]
